FAERS Safety Report 19969077 (Version 1)
Quarter: 2021Q4

REPORT INFORMATION
  Report Type: Spontaneous
  Country: US (occurrence: US)
  Receive Date: 20211015
  Receipt Date: 20211015
  Transmission Date: 20220304
  Serious: Yes (Hospitalization)
  Sender: FDA-Public Use
  Company Number: None

PATIENT
  Sex: Male
  Weight: 103.5 kg

DRUGS (1)
  1. CASODEX [Suspect]
     Active Substance: BICALUTAMIDE
     Dates: end: 20170119

REACTIONS (10)
  - Asthenia [None]
  - Abdominal pain [None]
  - Constipation [None]
  - Hyperhidrosis [None]
  - Bradycardia [None]
  - Sinus bradycardia [None]
  - Heart rate abnormal [None]
  - Syncope [None]
  - Atrioventricular block [None]
  - Atrioventricular block [None]

NARRATIVE: CASE EVENT DATE: 20210928
